FAERS Safety Report 8580618-5 (Version None)
Quarter: 2012Q3

REPORT INFORMATION
  Report Type: 
  Country: None (occurrence: None)
  Receive Date: 20120809
  Receipt Date: 20120705
  Transmission Date: 20120928
  Serious: Yes (Death, Hospitalization, Other)
  Sender: FDA-Public Use
  Company Number: CA-BAYER-2012-067717

PATIENT
  Age: 14 Year
  Sex: Female

DRUGS (3)
  1. GARDASIL [Suspect]
     Route: 051
  2. INFLUENZA VACCINE [Concomitant]
  3. YASMIN [Suspect]
     Dosage: UNK
     Route: 048

REACTIONS (12)
  - ASTHENIA [None]
  - SYNCOPE [None]
  - ABASIA [None]
  - BLOOD GLUCOSE INCREASED [None]
  - DIZZINESS POSTURAL [None]
  - BASILAR MIGRAINE [None]
  - VOMITING [None]
  - CONFUSIONAL STATE [None]
  - CRYING [None]
  - LOSS OF CONSCIOUSNESS [None]
  - CARDIAC ARREST [None]
  - DROWNING [None]
